FAERS Safety Report 16563152 (Version 2)
Quarter: 2019Q3

REPORT INFORMATION
  Report Type: Report from Study
  Country: US (occurrence: US)
  Receive Date: 20190711
  Receipt Date: 20190716
  Transmission Date: 20191004
  Serious: Yes (Hospitalization)
  Sender: FDA-Public Use
  Company Number: US-ACTELION-A-NJ2019-192940

PATIENT
  Age: 59 Year
  Sex: Female

DRUGS (8)
  1. TRACLEER [Suspect]
     Active Substance: BOSENTAN
     Indication: PULMONARY ARTERIAL HYPERTENSION
     Dosage: 125 MG, BID
     Route: 048
     Dates: start: 20180410
  2. CHOLESTYRAMINE. [Concomitant]
     Active Substance: CHOLESTYRAMINE
  3. PANTOPRAZOLE [Concomitant]
     Active Substance: PANTOPRAZOLE
  4. SUCRALFATE. [Concomitant]
     Active Substance: SUCRALFATE
  5. BACLOFEN. [Concomitant]
     Active Substance: BACLOFEN
  6. LIDOCAINE. [Concomitant]
     Active Substance: LIDOCAINE
  7. HUMALOG [Concomitant]
     Active Substance: INSULIN LISPRO
  8. ENTERAGAM [Concomitant]
     Active Substance: DIETARY SUPPLEMENT

REACTIONS (3)
  - Nasal congestion [Not Recovered/Not Resolved]
  - Gastrointestinal haemorrhage [Not Recovered/Not Resolved]
  - Product dose omission [Not Recovered/Not Resolved]

NARRATIVE: CASE EVENT DATE: 20190628
